FAERS Safety Report 12704279 (Version 2)
Quarter: 2016Q4

REPORT INFORMATION
  Report Type: Report from Study
  Country: None (occurrence: US)
  Receive Date: 20160831
  Receipt Date: 20161006
  Transmission Date: 20170207
  Serious: Yes (Hospitalization, Other)
  Sender: FDA-Public Use
  Company Number: US-ABBVIE-16P-163-1713242-00

PATIENT
  Age: 33 Year
  Sex: Female
  Weight: 68.1 kg

DRUGS (5)
  1. PERCOCET [Concomitant]
     Active Substance: ACETAMINOPHEN\OXYCODONE HYDROCHLORIDE
     Indication: PAIN
     Dosage: 5/325
     Route: 048
  2. MS CONTIN [Concomitant]
     Active Substance: MORPHINE SULFATE
     Indication: PAIN
     Route: 048
  3. NORETHINDRONE ACETATE. [Concomitant]
     Active Substance: NORETHINDRONE ACETATE
     Indication: PRODUCT USED FOR UNKNOWN INDICATION
     Route: 048
  4. LUPRON DEPOT [Suspect]
     Active Substance: LEUPROLIDE ACETATE
     Indication: ENDOMETRIOSIS
     Route: 030
     Dates: start: 201504, end: 201510
  5. LUPRON DEPOT [Suspect]
     Active Substance: LEUPROLIDE ACETATE
     Route: 030
     Dates: start: 20160816

REACTIONS (9)
  - Intestinal obstruction [Recovered/Resolved]
  - Dyspnoea [Recovered/Resolved]
  - Incision site infection [Recovered/Resolved]
  - Dyspnoea [Recovered/Resolved]
  - Abdominal pain [Not Recovered/Not Resolved]
  - Pneumothorax [Recovered/Resolved]
  - Small intestinal resection [Recovering/Resolving]
  - Haematemesis [Recovered/Resolved]
  - Pneumothorax [Recovered/Resolved]

NARRATIVE: CASE EVENT DATE: 201606
